FAERS Safety Report 23762616 (Version 3)
Quarter: 2024Q2

REPORT INFORMATION
  Report Type: Spontaneous
  Country: JP (occurrence: JP)
  Receive Date: 20240419
  Receipt Date: 20240510
  Transmission Date: 20240716
  Serious: Yes (Death, Other)
  Sender: FDA-Public Use
  Company Number: JP-GENMAB-2024-00268

PATIENT
  Age: 8 Decade
  Sex: Female

DRUGS (5)
  1. EPKINLY [Suspect]
     Active Substance: EPCORITAMAB-BYSP
     Indication: Diffuse large B-cell lymphoma
     Dosage: 0.16 MILLIGRAM, SINGLE
     Route: 058
     Dates: start: 20240115, end: 20240115
  2. EPKINLY [Suspect]
     Active Substance: EPCORITAMAB-BYSP
     Indication: High-grade B-cell lymphoma
     Dosage: 0.8 MILLIGRAM, SINGLE
     Route: 058
     Dates: start: 20240122, end: 20240122
  3. EPKINLY [Suspect]
     Active Substance: EPCORITAMAB-BYSP
     Dosage: 48 MILLIGRAM
     Route: 058
     Dates: start: 20240129
  4. CORTICOTROPIN [Concomitant]
     Active Substance: CORTICOTROPIN
     Indication: Prophylaxis
     Dosage: UNK
  5. ACETAMINOPHEN [Concomitant]
     Active Substance: ACETAMINOPHEN
     Indication: Antipyresis
     Dosage: UNK

REACTIONS (4)
  - Diffuse large B-cell lymphoma [Fatal]
  - Blood lactate dehydrogenase increased [Not Recovered/Not Resolved]
  - White blood cell count increased [Recovered/Resolved]
  - C-reactive protein increased [Recovered/Resolved]

NARRATIVE: CASE EVENT DATE: 20240101
